FAERS Safety Report 5934160-8 (Version None)
Quarter: 2008Q4

REPORT INFORMATION
  Report Type: 
  Country: None (occurrence: None)
  Receive Date: 20081029
  Receipt Date: 20081023
  Transmission Date: 20090506
  Serious: Yes (Other)
  Sender: FDA-Public Use
  Company Number: A0754120A

PATIENT
  Age: 25 Year
  Sex: Male

DRUGS (1)
  1. LAMICTAL [Suspect]
     Route: 048

REACTIONS (3)
  - BRAIN NEOPLASM MALIGNANT [None]
  - CONVULSION [None]
  - TREATMENT NONCOMPLIANCE [None]
